FAERS Safety Report 7315154-7 (Version None)
Quarter: 2011Q1

REPORT INFORMATION
  Report Type: 
  Country: None (occurrence: None)
  Receive Date: 20110225
  Receipt Date: 20110215
  Transmission Date: 20110831
  Serious: Yes (Other)
  Sender: FDA-Public Use
  Company Number: FR-PFIZER INC-2010067301

PATIENT
  Age: 89 Year
  Sex: Male
  Weight: 55 kg

DRUGS (9)
  1. PREVISCAN [Interacting]
     Dosage: 0.25 DF, UNK
     Route: 048
     Dates: start: 20090129
  2. PREVISCAN [Interacting]
     Indication: THROMBOSIS PROPHYLAXIS
     Dosage: 0.5 DF, UNK
     Route: 048
     Dates: end: 20090128
  3. TRIFLUCAN [Suspect]
     Indication: ORAL FUNGAL INFECTION
     Dosage: 1 DF, 1X/DAY
     Route: 048
  4. SOLUPRED [Interacting]
     Indication: CHRONIC OBSTRUCTIVE PULMONARY DISEASE
     Dosage: 20 MG, 1X/DAY
     Route: 048
  5. TRIATEC [Concomitant]
     Indication: HYPERTENSION
     Dosage: 1 DF, 1X/DAY
     Route: 048
  6. CIPROFLOXACIN HYDROCHLORIDE [Interacting]
     Indication: LUNG DISORDER
     Dosage: 500 MG, 1X/DAY
     Route: 048
     Dates: start: 20090128
  7. TAZOCILLINE [Interacting]
     Indication: LUNG DISORDER
     Dosage: 1 DF, 2X/DAY
     Route: 042
     Dates: start: 20090128
  8. CEFTRIAXON [Interacting]
     Indication: LUNG DISORDER
     Dosage: 1 G, 1X/DAY
     Route: 042
     Dates: start: 20090126, end: 20090128
  9. METRONIDAZOLE [Interacting]
     Indication: LUNG DISORDER
     Dosage: 1 DF, 3X/DAY
     Route: 042
     Dates: start: 20090126, end: 20090128

REACTIONS (2)
  - DRUG INTERACTION [None]
  - INTERNATIONAL NORMALISED RATIO INCREASED [None]
